FAERS Safety Report 10514917 (Version 3)
Quarter: 2014Q4

REPORT INFORMATION
  Report Type: Spontaneous
  Country: BR (occurrence: BR)
  Receive Date: 20141013
  Receipt Date: 20141114
  Transmission Date: 20150528
  Serious: Yes (Death, Other)
  Sender: FDA-Public Use
  Company Number: BR-ABBVIE-14K-020-1293736-00

PATIENT
  Age: 48 Year
  Sex: Male
  Weight: 70 kg

DRUGS (1)
  1. HUMIRA [Suspect]
     Active Substance: ADALIMUMAB
     Indication: ANKYLOSING SPONDYLITIS
     Route: 065
     Dates: start: 201211, end: 20140802

REACTIONS (4)
  - Thrombosis [Not Recovered/Not Resolved]
  - Pulmonary embolism [Unknown]
  - Lung adenocarcinoma [Fatal]
  - Embolism [Unknown]

NARRATIVE: CASE EVENT DATE: 20140802
